FAERS Safety Report 5063525-4 (Version None)
Quarter: 2006Q3

REPORT INFORMATION
  Report Type: 
  Country: None (occurrence: None)
  Receive Date: 20060727
  Receipt Date: 20060717
  Transmission Date: 20061208
  Serious: Yes (Hospitalization)
  Sender: FDA-Public Use
  Company Number: FR-BRISTOL-MYERS SQUIBB COMPANY-13447156

PATIENT
  Age: 16 Year
  Sex: Female

DRUGS (6)
  1. VASTEN [Suspect]
     Indication: LIPIDS ABNORMAL
     Dates: start: 19990901
  2. PROGRAF [Suspect]
     Route: 048
     Dates: start: 19991020
  3. CELLCEPT [Suspect]
     Route: 048
     Dates: start: 19990801
  4. SOLUPRED [Concomitant]
     Route: 048
     Dates: start: 19990701, end: 20011001
  5. TARDYFERON [Concomitant]
     Route: 048
  6. NEORAL [Concomitant]
     Route: 048
     Dates: start: 19990701, end: 19991019

REACTIONS (1)
  - DIABETES MELLITUS [None]
